FAERS Safety Report 12584702 (Version 5)
Quarter: 2018Q1

REPORT INFORMATION
  Report Type: Report from Study
  Country: None (occurrence: CA)
  Receive Date: 20160722
  Receipt Date: 20180208
  Transmission Date: 20180508
  Serious: Yes (Other)
  Sender: FDA-Public Use
  Company Number: CA-ABBVIE-16P-028-1683593-00

PATIENT
  Age: 67 Year
  Sex: Male
  Weight: 84.44 kg

DRUGS (7)
  1. ATENOLOL. [Concomitant]
     Active Substance: ATENOLOL
     Indication: PRODUCT USED FOR UNKNOWN INDICATION
  2. BISOPROLOL [Concomitant]
     Active Substance: BISOPROLOL
     Indication: PRODUCT USED FOR UNKNOWN INDICATION
  3. MODERIBA [Suspect]
     Active Substance: RIBAVIRIN
     Route: 048
     Dates: start: 20160713
  4. INSULIN (NOVO 70/30) [Concomitant]
     Indication: PRODUCT USED FOR UNKNOWN INDICATION
  5. HOLKIRA PAK [Suspect]
     Active Substance: DASABUVIR\OMBITASVIR\PARITAPREVIR\RITONAVIR
     Indication: HEPATITIS C
     Dosage: 2 OMBITASVIR/PARITAPREVIR/RITONAVIR 12.5/75/50 MG TABS QD, 1 DASABUVIR 250 MG TAB BID
     Route: 048
     Dates: start: 20160708
  6. MODERIBA [Suspect]
     Active Substance: RIBAVIRIN
     Indication: HEPATITIS C
     Route: 048
     Dates: start: 20160708, end: 20160712
  7. ACETYLSALICYLIC ACID (ASPIRIN) [Concomitant]
     Indication: PRODUCT USED FOR UNKNOWN INDICATION

REACTIONS (9)
  - Photopsia [Recovering/Resolving]
  - Eye contusion [Recovering/Resolving]
  - Psychotic disorder [Recovering/Resolving]
  - Disorientation [Recovering/Resolving]
  - Laceration [Unknown]
  - Laceration [Recovering/Resolving]
  - Delirium [Recovering/Resolving]
  - Night sweats [Not Recovered/Not Resolved]
  - Insomnia [Not Recovered/Not Resolved]

NARRATIVE: CASE EVENT DATE: 201607
